FAERS Safety Report 4459193-2 (Version None)
Quarter: 2004Q3

REPORT INFORMATION
  Report Type: 
  Country: None (occurrence: None)
  Receive Date: 20040920
  Receipt Date: 20040920
  Transmission Date: 20050211
  Serious: Yes (Hospitalization)
  Sender: FDA-Public Use
  Company Number: None

PATIENT
  Age: 26 Year
  Sex: Female

DRUGS (4)
  1. SULFADIAZINE [Suspect]
     Indication: TOXOPLASMOSIS
     Dosage: 1500 MG QID ORAL
     Route: 048
     Dates: start: 20040810, end: 20040916
  2. LEUKOVORINE [Concomitant]
  3. AZITHROMYCIN [Concomitant]
  4. PYRAMETHAMINE [Concomitant]

REACTIONS (2)
  - CRYSTAL URINE PRESENT [None]
  - RENAL FAILURE ACUTE [None]
